FAERS Safety Report 17566738 (Version 1)
Quarter: 2020Q1

REPORT INFORMATION
  Report Type: Report from Study
  Country: US (occurrence: US)
  Receive Date: 20200320
  Receipt Date: 20200320
  Transmission Date: 20200409
  Serious: Yes (Other)
  Sender: FDA-Public Use
  Company Number: US-JNJFOC-NSADSS2002028845

PATIENT
  Age: 66 Year
  Sex: Female
  Weight: 72.64 kg

DRUGS (5)
  1. REMERON [Concomitant]
     Active Substance: MIRTAZAPINE
     Indication: DEPRESSION
     Route: 048
     Dates: start: 20010818
  2. FLUVIRIN NOS [Concomitant]
     Active Substance: INFLUENZA VIRUS VACCINE
     Indication: INFLUENZA IMMUNISATION
     Dates: start: 20011129, end: 20011129
  3. CISAPRIDE [Suspect]
     Active Substance: CISAPRIDE
     Indication: IMPAIRED GASTRIC EMPTYING
     Route: 048
     Dates: start: 200106, end: 20020809
  4. PREMPRO [Concomitant]
     Active Substance: ESTROGENS, CONJUGATED\MEDROXYPROGESTERONE ACETATE
     Indication: POSTMENOPAUSE
     Route: 048
  5. XANAX [Concomitant]
     Active Substance: ALPRAZOLAM
     Indication: DEPRESSION
     Route: 048

REACTIONS (2)
  - Ventricular extrasystoles [Recovered/Resolved]
  - Electrocardiogram abnormal [Recovered/Resolved]

NARRATIVE: CASE EVENT DATE: 20020809
